FAERS Safety Report 7927292-6 (Version None)
Quarter: 2011Q4

REPORT INFORMATION
  Report Type: 
  Country: None (occurrence: None)
  Receive Date: 20111116
  Receipt Date: 20111103
  Transmission Date: 20120403
  Serious: Yes (Hospitalization, Other)
  Sender: FDA-Public Use
  Company Number: 2011P1010042

PATIENT
  Age: 77 Year
  Sex: Male
  Weight: 92.0802 kg

DRUGS (8)
  1. DOXYCYCLINE HYCLATE [Suspect]
     Indication: HORDEOLUM
     Dosage: 100 MG;BID;PO
     Route: 048
     Dates: start: 20110801
  2. HYDROCODONE BITARTRATE AND ACETAMINOPHEN [Concomitant]
  3. VALIUM [Concomitant]
  4. TREANDA [Concomitant]
  5. RITUXAN [Concomitant]
  6. GLIPIZIDE [Concomitant]
  7. DILTIAZEM HCL [Concomitant]
  8. FUROSEMIDE [Concomitant]

REACTIONS (3)
  - LIVER DISORDER [None]
  - NEOPLASM RECURRENCE [None]
  - NON-HODGKIN'S LYMPHOMA [None]
